FAERS Safety Report 23110510 (Version 1)
Quarter: 2023Q4

REPORT INFORMATION
  Report Type: Spontaneous
  Country: CN (occurrence: CN)
  Receive Date: 20231026
  Receipt Date: 20231026
  Transmission Date: 20240110
  Serious: Yes (Life-Threatening)
  Sender: FDA-Public Use
  Company Number: CN-ORPHANEU-2023007278

PATIENT

DRUGS (4)
  1. SYLVANT [Suspect]
     Active Substance: SILTUXIMAB
     Indication: Cerebral infarction
     Dosage: 67 MILLIGRAM
     Route: 065
     Dates: start: 20231009, end: 20231009
  2. SYLVANT [Suspect]
     Active Substance: SILTUXIMAB
     Indication: Off label use
  3. ALTEPLASE [Concomitant]
     Active Substance: ALTEPLASE
     Indication: Cerebral infarction
     Dosage: 6.7 MILLIGRAM
     Route: 042
     Dates: start: 20231009
  4. ALTEPLASE [Concomitant]
     Active Substance: ALTEPLASE
     Dosage: 60.3 MILLIGRAM ( PUMPED BY A MICROCOMPUTER AT 13:39)
     Route: 042
     Dates: start: 20231009

REACTIONS (2)
  - Cerebral haemorrhage [Not Recovered/Not Resolved]
  - Off label use [Recovered/Resolved]

NARRATIVE: CASE EVENT DATE: 20231009
